FAERS Safety Report 8572203-6 (Version None)
Quarter: 2012Q3

REPORT INFORMATION
  Report Type: 
  Country: None (occurrence: None)
  Receive Date: 20120806
  Receipt Date: 20120724
  Transmission Date: 20120928
  Serious: Yes (Hospitalization)
  Sender: FDA-Public Use
  Company Number: US-ASTELLAS-2012US006649

PATIENT
  Sex: Male
  Weight: 82 kg

DRUGS (3)
  1. BEVACIZUMAB [Suspect]
     Indication: NON-SMALL CELL LUNG CANCER
     Dosage: UNK
     Route: 065
     Dates: start: 20120627
  2. ALIMTA [Concomitant]
     Indication: NON-SMALL CELL LUNG CANCER
     Dosage: UNK
     Route: 042
  3. ERLOTINIB HYDROCHLORIDE [Suspect]
     Indication: NON-SMALL CELL LUNG CANCER
     Dosage: 150 MG, UID/QD
     Route: 048
     Dates: start: 20120221, end: 20120316

REACTIONS (4)
  - PNEUMOCYSTIS JIROVECI INFECTION [None]
  - RASH [None]
  - COUGH [None]
  - FATIGUE [None]
